FAERS Safety Report 8462957-1 (Version None)
Quarter: 2012Q2

REPORT INFORMATION
  Report Type: 
  Country: None (occurrence: None)
  Receive Date: 20120625
  Receipt Date: 20111128
  Transmission Date: 20120825
  Serious: Yes (Other)
  Sender: FDA-Public Use
  Company Number: US-GLAXOSMITHKLINE-A0956331A

PATIENT
  Age: 56 Year
  Sex: Female
  Weight: 77 kg

DRUGS (9)
  1. LETROZOLE [Concomitant]
  2. XELODA [Concomitant]
  3. DILTIAZEM HYDROCHOLORIDE [Concomitant]
  4. IMODIUM [Concomitant]
  5. XANAX [Concomitant]
  6. POTASSIUM CHLORIDE [Concomitant]
  7. TEMAZEPAM [Concomitant]
  8. ZOFRAN [Concomitant]
  9. TYKERB [Suspect]
     Indication: METASTASES TO PLEURA
     Dosage: 1000MG PER DAY
     Route: 048
     Dates: start: 20110816

REACTIONS (4)
  - DIARRHOEA [None]
  - COLON NEOPLASM [None]
  - VITREOUS FLOATERS [None]
  - RASH VESICULAR [None]
